FAERS Safety Report 23815374 (Version 2)
Quarter: 2024Q2

REPORT INFORMATION
  Report Type: Spontaneous
  Country: US (occurrence: US)
  Receive Date: 20240503
  Receipt Date: 20240613
  Transmission Date: 20240716
  Serious: No
  Sender: FDA-Public Use
  Company Number: US-PFIZER INC-202400098800

PATIENT
  Age: 87 Year
  Sex: Female
  Weight: 70.31 kg

DRUGS (1)
  1. ESTRING [Suspect]
     Active Substance: ESTRADIOL
     Dosage: UNK

REACTIONS (3)
  - Constipation [Unknown]
  - Body height decreased [Unknown]
  - Intentional product misuse [Unknown]
